FAERS Safety Report 9157729 (Version 3)
Quarter: 2014Q1

REPORT INFORMATION
  Report Type: Report from Study
  Country: US (occurrence: US)
  Receive Date: 20130312
  Receipt Date: 20140117
  Transmission Date: 20141002
  Serious: Yes (Disabling, Other)
  Sender: FDA-Public Use
  Company Number: US-PFIZER INC-2011010056

PATIENT
  Age: 67 Year
  Sex: Female

DRUGS (6)
  1. LIPITOR [Suspect]
     Dosage: 10 MG, 1X/DAY
  2. DETROL LA [Suspect]
     Dosage: 4 MG, 1X/DAY
  3. DEPO-ESTRADIOL [Suspect]
     Dosage: 5 MG, ? CC EVERY TWO WEEKS
  4. LYRICA [Suspect]
     Dosage: 150 MG, 3X/DAY
  5. SYNTHROID [Concomitant]
     Dosage: 0.5 MG, 1X/DAY
  6. EPIPEN [Concomitant]
     Dosage: UNK

REACTIONS (4)
  - Hip arthroplasty [Unknown]
  - Gait disturbance [Unknown]
  - Fall [Unknown]
  - Pain [Unknown]
